FAERS Safety Report 8507649 (Version 4)
Quarter: 2014Q2

REPORT INFORMATION
  Report Type: Spontaneous
  Country: US (occurrence: US)
  Receive Date: 20120412
  Receipt Date: 20140401
  Transmission Date: 20141212
  Serious: Yes (Other)
  Sender: FDA-Public Use
  Company Number: US-ASTRAZENECA-2011SE22911

PATIENT
  Age: 66 Year
  Sex: Male
  Weight: 89.8 kg

DRUGS (16)
  1. NEXIUM [Suspect]
     Indication: DYSPEPSIA
     Route: 048
     Dates: start: 2004, end: 20140322
  2. NEXIUM [Suspect]
     Indication: GASTROOESOPHAGEAL REFLUX DISEASE
     Route: 048
     Dates: start: 2004, end: 20140322
  3. NEXIUM [Suspect]
     Indication: BARRETT^S OESOPHAGUS
     Route: 048
     Dates: start: 2004, end: 20140322
  4. NEXIUM [Suspect]
     Indication: DYSPEPSIA
     Route: 048
  5. NEXIUM [Suspect]
     Indication: GASTROOESOPHAGEAL REFLUX DISEASE
     Route: 048
  6. NEXIUM [Suspect]
     Indication: BARRETT^S OESOPHAGUS
     Route: 048
  7. PRILOSEC OTC [Suspect]
     Route: 048
  8. OMEPRAZOLE OTC [Suspect]
     Route: 048
  9. DIOVAN [Suspect]
     Indication: BLOOD PRESSURE ABNORMAL
     Route: 065
  10. OXYCODONE [Concomitant]
     Indication: PAIN
     Route: 048
  11. OXYCODONE [Concomitant]
     Indication: PAIN
     Dosage: PRESCRIBED TO TAKE Q4-5 HOURS BUT HE ONLY TAKES IT WHEN HE HAS PAIN
     Route: 048
  12. FUROSEMIDE [Concomitant]
     Indication: RENAL DISORDER
     Route: 048
  13. CALCITRIOL [Concomitant]
     Indication: RENAL DISORDER
     Dosage: 0.25MCG
     Route: 048
  14. CALCITRIOL [Concomitant]
     Indication: RENAL DISORDER
     Dosage: 5 DAYS A WEEK AND 2 DAYS HE IS OFF OF OF IT AND CONTINUES TO TAKE IT ON THIS SCHEDULE EVERY WEEK
     Route: 048
  15. ALLOPURINOL [Concomitant]
     Indication: RENAL DISORDER
     Route: 048
  16. OVER THE COUNTER MEDICATION [Concomitant]

REACTIONS (12)
  - Throat cancer [Unknown]
  - Oesophageal disorder [Unknown]
  - Barrett^s oesophagus [Unknown]
  - Throat irritation [Unknown]
  - Dysphonia [Unknown]
  - Gastrooesophageal reflux disease [Unknown]
  - Dyspepsia [Unknown]
  - Weight decreased [Unknown]
  - Activities of daily living impaired [Unknown]
  - Back pain [Unknown]
  - Drug dose omission [Unknown]
  - Drug ineffective [Unknown]
